FAERS Safety Report 4675865-9 (Version None)
Quarter: 2005Q2

REPORT INFORMATION
  Report Type: 
  Country: None (occurrence: None)
  Receive Date: 20050526
  Receipt Date: 20050526
  Transmission Date: 20051028
  Serious: Yes (Other)
  Sender: FDA-Public Use
  Company Number: None

PATIENT
  Age: 63 Year
  Sex: Male

DRUGS (1)
  1. ZIPRASIDONE HCL [Suspect]
     Indication: SCHIZOPHRENIA
     Dosage: 20 MG BID IM
     Route: 030
     Dates: start: 20050929, end: 20051001

REACTIONS (4)
  - DROOLING [None]
  - FLAT AFFECT [None]
  - GAIT DISTURBANCE [None]
  - PARKINSONIAN REST TREMOR [None]
